FAERS Safety Report 10389842 (Version 2)
Quarter: 2014Q3

REPORT INFORMATION
  Report Type: Spontaneous
  Country: FR (occurrence: None)
  Receive Date: 20140813
  Receipt Date: 20140916
  Transmission Date: 20150326
  Serious: Yes (Death, Hospitalization)
  Sender: FDA-Public Use
  Company Number: NGX_02312_2014

PATIENT
  Age: 66 Year
  Sex: Female

DRUGS (5)
  1. QUTENZA [Suspect]
     Active Substance: CAPSAICIN
     Indication: NEURALGIA
     Dosage: CUTANEOUS PATCH TRANSDERMAL
     Dates: start: 20130709, end: 20130709
  2. OXYCODONE [Concomitant]
     Active Substance: OXYCODONE
  3. EMLA [Concomitant]
     Active Substance: LIDOCAINE\PRILOCAINE
  4. NEFOPAM [Concomitant]
     Active Substance: NEFOPAM
  5. OPIODS [Concomitant]
     Active Substance: UNSPECIFIED INGREDIENT

REACTIONS (7)
  - Dyspnoea [None]
  - No therapeutic response [None]
  - Malaise [None]
  - Bone pain [None]
  - Cardio-respiratory arrest [None]
  - Pancreatic carcinoma [None]
  - General physical condition abnormal [None]
